FAERS Safety Report 22659184 (Version 2)
Quarter: 2023Q4

REPORT INFORMATION
  Report Type: Spontaneous
  Country: PL (occurrence: PL)
  Receive Date: 20230630
  Receipt Date: 20231116
  Transmission Date: 20240110
  Serious: Yes (Hospitalization)
  Sender: FDA-Public Use
  Company Number: PL-002147023-NVSC2023PL139885

PATIENT
  Age: 32 Year
  Sex: Female

DRUGS (5)
  1. RITUXIMAB [Suspect]
     Active Substance: RITUXIMAB
     Indication: Product used for unknown indication
     Dosage: 100 MG, (4 DOSES EVERY WEEK)
     Route: 065
  2. METHYLPREDNISOLONE [Suspect]
     Active Substance: METHYLPREDNISOLONE
     Indication: Product used for unknown indication
     Dosage: 8 MG
     Route: 065
  3. METHYLPREDNISOLONE [Suspect]
     Active Substance: METHYLPREDNISOLONE
     Dosage: 12 MG
     Route: 065
  4. NPLATE [Concomitant]
     Active Substance: ROMIPLOSTIM
     Indication: Product used for unknown indication
     Dosage: 250 UG, QW
  5. FOSTAMATINIB [Concomitant]
     Active Substance: FOSTAMATINIB
     Indication: Product used for unknown indication
     Dosage: UNK (NO POSSIBILITY)

REACTIONS (2)
  - Thrombocytopenia [Unknown]
  - Skin disorder [Unknown]
